FAERS Safety Report 21683944 (Version 1)
Quarter: 2022Q4

REPORT INFORMATION
  Report Type: Spontaneous
  Country: RS (occurrence: RS)
  Receive Date: 20221205
  Receipt Date: 20221205
  Transmission Date: 20230113
  Serious: Yes (Death, Other)
  Sender: FDA-Public Use
  Company Number: RS-009507513-2111SRB001815

PATIENT
  Sex: Male

DRUGS (1)
  1. KEYTRUDA [Suspect]
     Active Substance: PEMBROLIZUMAB
     Indication: Lung cancer metastatic
     Dosage: UNK

REACTIONS (6)
  - Death [Fatal]
  - Polyneuropathy [Unknown]
  - Hepatitis [Unknown]
  - Mucosal inflammation [Unknown]
  - Skin disorder [Unknown]
  - Colitis [Unknown]
